FAERS Safety Report 5142404-8 (Version None)
Quarter: 2006Q4

REPORT INFORMATION
  Report Type: 
  Country: None (occurrence: None)
  Receive Date: 20061102
  Receipt Date: 20061030
  Transmission Date: 20070319
  Serious: Yes (Other)
  Sender: FDA-Public Use
  Company Number: GB-BRISTOL-MYERS SQUIBB COMPANY-13560420

PATIENT
  Age: 41 Year
  Sex: Female

DRUGS (3)
  1. CISPLATIN [Suspect]
     Indication: SQUAMOUS CELL CARCINOMA OF THE CERVIX
  2. RADIOTHERAPY [Concomitant]
     Indication: SQUAMOUS CELL CARCINOMA OF THE CERVIX
  3. CAPECITABINE [Concomitant]
     Indication: SQUAMOUS CELL CARCINOMA OF THE CERVIX

REACTIONS (4)
  - COAGULOPATHY [None]
  - MICROANGIOPATHY [None]
  - OSTEONECROSIS [None]
  - THROMBOSIS [None]
